FAERS Safety Report 6663408-X (Version None)
Quarter: 2010Q1

REPORT INFORMATION
  Report Type: 
  Country: None (occurrence: None)
  Receive Date: 20100330
  Receipt Date: 20100330
  Transmission Date: 20100710
  Serious: Yes (Life-Threatening, Hospitalization)
  Sender: FDA-Public Use
  Company Number: None

PATIENT
  Age: 22 Year
  Sex: Male

DRUGS (5)
  1. DIVALPROEX SODIUM EXTENDED RELEASE [Suspect]
     Indication: SCHIZOAFFECTIVE DISORDER BIPOLAR TYPE
     Dosage: 2500 MG AT BEDTIME PO
     Route: 048
     Dates: start: 20091102, end: 20100117
  2. CLOZAPINE [Suspect]
     Indication: SCHIZOAFFECTIVE DISORDER BIPOLAR TYPE
     Dosage: 300 MG AT BEDTIME PO
     Route: 048
     Dates: start: 20091229, end: 20100117
  3. MULTIVITAMANS WITH MINERALS [Concomitant]
  4. VERAPAMIL [Concomitant]
  5. PROMETHAZINE [Concomitant]

REACTIONS (16)
  - ANTIPSYCHOTIC DRUG LEVEL INCREASED [None]
  - ASPARTATE AMINOTRANSFERASE INCREASED [None]
  - BLOOD ALBUMIN DECREASED [None]
  - BLOOD PRESSURE FLUCTUATION [None]
  - BODY TEMPERATURE FLUCTUATION [None]
  - CONFUSIONAL STATE [None]
  - FEELING COLD [None]
  - HYPERHIDROSIS [None]
  - NO THERAPEUTIC RESPONSE [None]
  - PANCREATITIS ACUTE [None]
  - SEDATION [None]
  - TACHYCARDIA [None]
  - TACHYPNOEA [None]
  - THROMBOTIC THROMBOCYTOPENIC PURPURA [None]
  - TREMOR [None]
  - VIRAL TEST POSITIVE [None]
